FAERS Safety Report 25736815 (Version 1)
Quarter: 2025Q3

REPORT INFORMATION
  Report Type: Spontaneous
  Country: EU (occurrence: EU)
  Receive Date: 20250828
  Receipt Date: 20250828
  Transmission Date: 20251021
  Serious: Yes (Hospitalization, Other)
  Sender: PFIZER
  Company Number: EU-ROCHE-1106123

PATIENT
  Age: 54 Year
  Sex: Female
  Weight: 57 kg

DRUGS (4)
  1. TRASTUZUMAB [Suspect]
     Active Substance: TRASTUZUMAB
     Indication: Breast cancer
     Dosage: 342 MG, EVERY 3 WEEKS (DATE OF LAST DOSE PRIOR TO SAE : 14/AUG/2012)
     Route: 042
     Dates: start: 20120707
  2. DOCETAXEL [Suspect]
     Active Substance: DOCETAXEL
     Indication: Breast cancer
     Dosage: 94.2 MG, EVERY 3 WEEKS (DATE OF LAST DOSE PRIOR TO SAE: 14/AUG/2012)
     Route: 042
     Dates: start: 20120707
  3. CARBOPLATIN [Suspect]
     Active Substance: CARBOPLATIN
     Indication: Breast cancer
     Dosage: 960.54 MG, EVERY 3 WEEKS (DATE OF LAST DOSE PRIOR TO SAE: 14/AUG/2012)
     Route: 042
     Dates: start: 20120707
  4. PERTUZUMAB [Suspect]
     Active Substance: PERTUZUMAB
     Indication: Breast cancer
     Dosage: 420 MG, EVERY 3 WEEKS (DATE OF LAST DOSE PRIOR TO SAE: 14/AUG/2012)
     Route: 042
     Dates: start: 20120707

REACTIONS (5)
  - Dehydration [Recovered/Resolved]
  - White blood cell count decreased [Unknown]
  - Red blood cell count decreased [Unknown]
  - Haemoglobin decreased [Unknown]
  - Haematocrit decreased [Unknown]

NARRATIVE: CASE EVENT DATE: 20120821
